FAERS Safety Report 19796093 (Version 1)
Quarter: 2021Q3

REPORT INFORMATION
  Report Type: Spontaneous
  Country: US (occurrence: US)
  Receive Date: 20210907
  Receipt Date: 20210907
  Transmission Date: 20211014
  Serious: Yes (Other)
  Sender: FDA-Public Use
  Company Number: US-ROCHE-2898862

PATIENT
  Age: 55 Year
  Sex: Male
  Weight: 74 kg

DRUGS (1)
  1. OCREVUS [Suspect]
     Active Substance: OCRELIZUMAB
     Indication: MULTIPLE SCLEROSIS
     Route: 042
     Dates: start: 2018

REACTIONS (8)
  - Muscle rupture [Unknown]
  - Stress [Unknown]
  - Muscle strain [Unknown]
  - Dysstasia [Unknown]
  - Muscle spasms [Unknown]
  - Peripheral swelling [Unknown]
  - Multiple sclerosis [Unknown]
  - Muscle tightness [Unknown]

NARRATIVE: CASE EVENT DATE: 202108
